FAERS Safety Report 10081602 (Version 1)
Quarter: 2014Q2

REPORT INFORMATION
  Report Type: Spontaneous
  Country: IT (occurrence: None)
  Receive Date: 20140414
  Receipt Date: 20140414
  Transmission Date: 20141212
  Serious: Yes (Other)
  Sender: FDA-Public Use
  Company Number: 2279400

PATIENT
  Age: 19 Year
  Sex: Male

DRUGS (1)
  1. VANCOMYCIN HYDROCHLORIDE [Suspect]
     Indication: OSTEOMYELITIS CHRONIC
     Dosage: 800 MG MILLIGRAM(S), (TOTAL)  (NOT OTHERWISE SPECIFIED)
     Route: 042
     Dates: start: 20130923, end: 20130923

REACTIONS (4)
  - Abdominal pain [None]
  - Tachycardia [None]
  - Vomiting [None]
  - Nausea [None]
